FAERS Safety Report 13301288 (Version 1)
Quarter: 2017Q1

REPORT INFORMATION
  Report Type: Spontaneous
  Country: US (occurrence: US)
  Receive Date: 20170306
  Receipt Date: 20170306
  Transmission Date: 20170428
  Serious: No
  Sender: FDA-Public Use
  Company Number: None

PATIENT
  Age: 70 Year
  Sex: Female
  Weight: 99 kg

DRUGS (10)
  1. FLOVENT [Concomitant]
     Active Substance: FLUTICASONE PROPIONATE
  2. POTASSIUM [Concomitant]
     Active Substance: POTASSIUM
  3. METOPROLOL. [Concomitant]
     Active Substance: METOPROLOL
  4. MAGNESIUM [Concomitant]
     Active Substance: MAGNESIUM
  5. MEGA-RED [Concomitant]
  6. OTC GENERALVITAMIN [Concomitant]
  7. CALCIUM [Concomitant]
     Active Substance: CALCIUM
  8. ALBUTEROL. [Concomitant]
     Active Substance: ALBUTEROL
  9. VITAMIN D [Concomitant]
     Active Substance: CHOLECALCIFEROL
  10. PULMICORT FLEXHALER [Suspect]
     Active Substance: BUDESONIDE
     Indication: ASTHMA
     Route: 055
     Dates: start: 20170302, end: 20170302

REACTIONS (7)
  - Wheezing [None]
  - Asthenia [None]
  - Loss of consciousness [None]
  - Listless [None]
  - Fatigue [None]
  - Respiratory disorder [None]
  - Dizziness [None]

NARRATIVE: CASE EVENT DATE: 20170302
